FAERS Safety Report 11052209 (Version 4)
Quarter: 2015Q3

REPORT INFORMATION
  Report Type: Report from Study
  Country: US (occurrence: US)
  Receive Date: 20150421
  Receipt Date: 20150710
  Transmission Date: 20151125
  Serious: Yes (Life-Threatening, Hospitalization)
  Sender: FDA-Public Use
  Company Number: PHEH2015US006831

PATIENT
  Sex: Male

DRUGS (1)
  1. EXJADE [Suspect]
     Active Substance: DEFERASIROX
     Indication: MYELODYSPLASTIC SYNDROME
     Dosage: UNK
     Route: 065

REACTIONS (8)
  - Anaemia [Unknown]
  - Acute respiratory failure [Unknown]
  - Urinary retention [Unknown]
  - Dehydration [Unknown]
  - Pneumonia [Unknown]
  - Asthenia [Unknown]
  - Acute kidney injury [Unknown]
  - Type 2 diabetes mellitus [Unknown]
